FAERS Safety Report 17723900 (Version 5)
Quarter: 2020Q2

REPORT INFORMATION
  Report Type: Spontaneous
  Country: US (occurrence: US)
  Receive Date: 20200429
  Receipt Date: 20200604
  Transmission Date: 20200714
  Serious: Yes (Hospitalization)
  Sender: FDA-Public Use
  Company Number: US-PFIZER INC-2020116294

PATIENT
  Age: 64 Year
  Sex: Female
  Weight: 54.43 kg

DRUGS (7)
  1. NIVESTYM [Suspect]
     Active Substance: FILGRASTIM-AAFI
     Indication: RED BLOOD CELL COUNT DECREASED
     Dosage: 300 MCG/0.5 ML
  2. VALACICLOVIR [Concomitant]
     Active Substance: VALACYCLOVIR HYDROCHLORIDE
     Indication: HERPES ZOSTER
     Dosage: UNK
  3. NIVESTYM [Suspect]
     Active Substance: FILGRASTIM-AAFI
     Indication: WHITE BLOOD CELL COUNT DECREASED
  4. NIVESTYM [Suspect]
     Active Substance: FILGRASTIM-AAFI
     Indication: PLATELET COUNT DECREASED
     Dosage: 3 ML
     Dates: start: 202003
  5. CYMBALTA [Concomitant]
     Active Substance: DULOXETINE HYDROCHLORIDE
     Dosage: UNK
  6. POTASSIUM [Concomitant]
     Active Substance: POTASSIUM
     Dosage: UNK
  7. NIVESTYM [Suspect]
     Active Substance: FILGRASTIM-AAFI
     Indication: PLASMA CELL MYELOMA
     Dosage: 300 UG

REACTIONS (6)
  - Dehydration [Unknown]
  - Body height decreased [Unknown]
  - Respiratory disorder [Unknown]
  - Decreased appetite [Recovering/Resolving]
  - Diarrhoea [Recovering/Resolving]
  - Nausea [Recovering/Resolving]

NARRATIVE: CASE EVENT DATE: 2020
